FAERS Safety Report 11988725 (Version 5)
Quarter: 2016Q2

REPORT INFORMATION
  Report Type: Report from Study
  Country: JP (occurrence: JP)
  Receive Date: 20160202
  Receipt Date: 20160519
  Transmission Date: 20160815
  Serious: Yes (Other)
  Sender: FDA-Public Use
  Company Number: JP-PFIZER INC-2016047267

PATIENT
  Age: 60 Year
  Sex: Male

DRUGS (2)
  1. CISPLATIN. [Suspect]
     Active Substance: CISPLATIN
     Indication: LUNG NEOPLASM MALIGNANT
     Dosage: UNK
  2. CAMPTO [Suspect]
     Active Substance: IRINOTECAN
     Indication: LUNG NEOPLASM MALIGNANT
     Dosage: UNK, 1X/DAY
     Route: 041

REACTIONS (1)
  - Hepatitis B [Recovering/Resolving]
